FAERS Safety Report 6839640-9 (Version None)
Quarter: 2010Q2

REPORT INFORMATION
  Report Type: 
  Country: None (occurrence: None)
  Receive Date: 20100629
  Receipt Date: 20100414
  Transmission Date: 20101027
  Serious: No
  Sender: FDA-Public Use
  Company Number: US-WYE-H14644610

PATIENT
  Age: 26 Year
  Sex: Female
  Weight: 68.1 kg

DRUGS (5)
  1. PRISTIQ [Suspect]
     Indication: DEPRESSION
     Dosage: 100 MG 1X PER 1 DAY, ORAL; 50 MG 1X PER 1 DAY, ORAL
     Route: 048
     Dates: start: 20090101, end: 20100101
  2. PRISTIQ [Suspect]
     Indication: DEPRESSION
     Dosage: 100 MG 1X PER 1 DAY, ORAL; 50 MG 1X PER 1 DAY, ORAL
     Route: 048
     Dates: start: 20100101
  3. ABILIFY [Concomitant]
  4. LAMICTAL [Concomitant]
  5. ADDERALL 10 [Concomitant]

REACTIONS (10)
  - DIZZINESS [None]
  - DRUG INEFFECTIVE [None]
  - DRUG WITHDRAWAL SYNDROME [None]
  - FATIGUE [None]
  - GASTROENTERITIS [None]
  - GASTROENTERITIS VIRAL [None]
  - IRRITABILITY [None]
  - NAUSEA [None]
  - PARAESTHESIA [None]
  - VOMITING [None]
